FAERS Safety Report 25071597 (Version 1)
Quarter: 2025Q1

REPORT INFORMATION
  Report Type: Report from Study
  Country: US (occurrence: US)
  Receive Date: 20250313
  Receipt Date: 20250313
  Transmission Date: 20250408
  Serious: Yes (Other)
  Sender: ABBVIE
  Company Number: US-ABBVIE-5456122

PATIENT
  Age: 33 Year
  Sex: Female
  Weight: 65 kg

DRUGS (1)
  1. SYNTHROID [Suspect]
     Active Substance: LEVOTHYROXINE SODIUM
     Indication: Hypothyroidism
     Dosage: FORM STRENGTH: 200 MICROGRAM
     Route: 048

REACTIONS (5)
  - Thyroid cancer [Unknown]
  - Maternal exposure during pregnancy [Unknown]
  - Product dispensing error [Unknown]
  - Graves^ disease [Unknown]
  - Live birth [Unknown]

NARRATIVE: CASE EVENT DATE: 20220101
